FAERS Safety Report 7593529-9 (Version None)
Quarter: 2011Q3

REPORT INFORMATION
  Report Type: 
  Country: None (occurrence: None)
  Receive Date: 20110706
  Receipt Date: 20110630
  Transmission Date: 20111222
  Serious: Yes (Death, Other)
  Sender: FDA-Public Use
  Company Number: US-SHIRE-ALL1-2011-02077

PATIENT
  Sex: Female
  Weight: 43.5 kg

DRUGS (8)
  1. FOSRENOL [Suspect]
     Indication: HYPERPHOSPHATAEMIA
     Dosage: 1000 MG, OTHER (WITH EACH MEAL)
     Route: 048
  2. VICODIN [Concomitant]
     Indication: PAIN
     Dosage: 750 MG, AS REQ'D (EVERY 12 HOURS AS NEEDED)
     Route: 048
  3. PLAVIX [Concomitant]
     Indication: PRODUCT USED FOR UNKNOWN INDICATION
     Dosage: 75 MG, 1X/DAY:QD
     Route: 048
  4. NEPHROCAPS [Concomitant]
     Indication: VITAMIN SUPPLEMENTATION
     Dosage: UNK, 1X/DAY:QD
     Route: 048
  5. B COMPLEX                          /06817001/ [Concomitant]
     Indication: PRODUCT USED FOR UNKNOWN INDICATION
     Dosage: 150 MG, 1X/DAY:QD
     Route: 048
  6. CLONIDINE [Concomitant]
     Indication: HYPERTENSION
     Dosage: 0.1 MG, 1X/DAY:QD
     Route: 048
  7. SENSIPAR [Concomitant]
     Indication: HYPERPARATHYROIDISM
     Dosage: 30 MG, 1X/DAY:QD
     Route: 048
  8. LISINOPRIL [Concomitant]
     Indication: HYPERTENSION
     Dosage: 5 MG, 1X/DAY:QD
     Route: 048

REACTIONS (2)
  - CERVICAL VERTEBRAL FRACTURE [None]
  - DEATH [None]
